FAERS Safety Report 14860232 (Version 1)
Quarter: 2018Q2

REPORT INFORMATION
  Report Type: Spontaneous
  Country: US (occurrence: US)
  Receive Date: 20180423
  Receipt Date: 20180423
  Transmission Date: 20180711
  Serious: Yes (Hospitalization)
  Sender: FDA-Public Use
  Company Number: None

PATIENT
  Sex: Female

DRUGS (5)
  1. EPIPEN [Concomitant]
     Active Substance: EPINEPHRINE
  2. TYLENOL [Concomitant]
     Active Substance: ACETAMINOPHEN
  3. LONSURF [Suspect]
     Active Substance: TIPIRACIL HYDROCHLORIDE\TRIFLURIDINE
     Indication: CARCINOID TUMOUR OF THE GASTROINTESTINAL TRACT
     Dosage: ?          OTHER FREQUENCY:BID FOR 2 WEEKS;?
     Route: 048
     Dates: start: 20170428
  4. NEULASTA [Concomitant]
     Active Substance: PEGFILGRASTIM
  5. LONSURF [Suspect]
     Active Substance: TIPIRACIL HYDROCHLORIDE\TRIFLURIDINE
     Indication: CARCINOID TUMOUR OF THE GASTROINTESTINAL TRACT
     Dosage: ?          OTHER FREQUENCY:BID FOR 2 WEEKS;?
     Route: 048
     Dates: start: 20170428

REACTIONS (5)
  - Clumsiness [None]
  - Muscular weakness [None]
  - Brain oedema [None]
  - Brain neoplasm [None]
  - Cerebral haemorrhage [None]
